FAERS Safety Report 16834023 (Version 4)
Quarter: 2022Q1

REPORT INFORMATION
  Report Type: Spontaneous
  Country: US (occurrence: US)
  Receive Date: 20190920
  Receipt Date: 20220113
  Transmission Date: 20220423
  Serious: No
  Sender: FDA-Public Use
  Company Number: US-PFIZER INC-2016101433

PATIENT
  Age: 78 Year
  Sex: Male
  Weight: 94 kg

DRUGS (4)
  1. LYRICA [Suspect]
     Active Substance: PREGABALIN
     Indication: Polyneuropathy alcoholic
     Dosage: 100 MG, 3X/DAY (AS NEEDED)
     Route: 048
     Dates: start: 201306
  2. LYRICA [Suspect]
     Active Substance: PREGABALIN
     Indication: Diabetic foot
     Dosage: 100 MG, 3X/DAY (AS NEEDED)
     Route: 048
  3. LYRICA [Suspect]
     Active Substance: PREGABALIN
     Indication: Diabetic neuropathy
  4. ALEVE [Concomitant]
     Active Substance: NAPROXEN SODIUM
     Indication: Hip arthroplasty
     Dosage: 220 MG, UNK
     Dates: start: 2018

REACTIONS (2)
  - Insomnia [Unknown]
  - Peripheral swelling [Unknown]
